FAERS Safety Report 6525814-3 (Version None)
Quarter: 2010Q1

REPORT INFORMATION
  Report Type: 
  Country: None (occurrence: None)
  Receive Date: 20100104
  Receipt Date: 20091221
  Transmission Date: 20100710
  Serious: Yes (Death)
  Sender: FDA-Public Use
  Company Number: B0582535A

PATIENT
  Sex: Female

DRUGS (2)
  1. KIVEXA [Suspect]
     Indication: DRUG USE FOR UNKNOWN INDICATION
     Route: 065
     Dates: start: 20080116
  2. KALETRA [Concomitant]
     Dates: start: 20080116

REACTIONS (4)
  - ANAEMIA [None]
  - EXTRADURAL HAEMATOMA [None]
  - GENERAL PHYSICAL HEALTH DETERIORATION [None]
  - MYELOFIBROSIS [None]
